FAERS Safety Report 23542658 (Version 1)
Quarter: 2024Q1

REPORT INFORMATION
  Report Type: Spontaneous
  Country: FI (occurrence: FI)
  Receive Date: 20240220
  Receipt Date: 20240220
  Transmission Date: 20240410
  Serious: No
  Sender: FDA-Public Use
  Company Number: FI-ALKEM LABORATORIES LIMITED-FI-ALKEM-2023-01916

PATIENT

DRUGS (1)
  1. TRIAMCINOLONE ACETONIDE [Suspect]
     Active Substance: TRIAMCINOLONE ACETONIDE
     Indication: Keloid scar
     Dosage: UNK (INJECTION)
     Route: 026

REACTIONS (5)
  - Ulcer [Recovering/Resolving]
  - Skin atrophy [Recovering/Resolving]
  - Telangiectasia [Recovering/Resolving]
  - Disease recurrence [Recovering/Resolving]
  - Product deposit [Unknown]
